FAERS Safety Report 6264949-X (Version None)
Quarter: 2009Q3

REPORT INFORMATION
  Report Type: 
  Country: None (occurrence: None)
  Receive Date: 20090709
  Receipt Date: 20090709
  Transmission Date: 20100115
  Serious: No
  Sender: FDA-Public Use
  Company Number: None

PATIENT
  Sex: Female
  Weight: 63.7757 kg

DRUGS (1)
  1. AMLODIPINE [Suspect]
     Indication: HYPERTENSION
     Dosage: 10MG DAILY PO
     Route: 048

REACTIONS (4)
  - ACNE [None]
  - ASTHENIA [None]
  - FATIGUE [None]
  - HEADACHE [None]
